FAERS Safety Report 16977091 (Version 1)
Quarter: 2019Q4

REPORT INFORMATION
  Report Type: Spontaneous
  Country: IT (occurrence: IT)
  Receive Date: 20191030
  Receipt Date: 20191030
  Transmission Date: 20200122
  Serious: Yes (Hospitalization, Other)
  Sender: FDA-Public Use
  Company Number: IT-AUROBINDO-AUR-APL-2019-069588

PATIENT
  Age: 36 Year
  Sex: Male

DRUGS (2)
  1. DEPAKIN [Suspect]
     Active Substance: VALPROATE SODIUM
     Indication: EPILEPSY
     Dosage: 600 MILLIGRAM, ONCE A DAY
     Route: 048
     Dates: start: 20151001
  2. LEVETIRACETAM FILM-COATED TABLET [Suspect]
     Active Substance: LEVETIRACETAM
     Indication: EPILEPSY
     Dosage: 3000 MILLIGRAM, ONCE A DAY
     Route: 048
     Dates: start: 20151001

REACTIONS (2)
  - Drug ineffective [Recovering/Resolving]
  - Epilepsy [Recovering/Resolving]

NARRATIVE: CASE EVENT DATE: 20191003
